FAERS Safety Report 15501621 (Version 1)
Quarter: 2018Q4

REPORT INFORMATION
  Report Type: Spontaneous
  Country: US (occurrence: US)
  Receive Date: 20181015
  Receipt Date: 20181015
  Transmission Date: 20190205
  Serious: No
  Sender: FDA-Public Use
  Company Number: US-AMGEN-USASP2017166314

PATIENT
  Age: 84 Year
  Sex: Female

DRUGS (2)
  1. ARANESP [Suspect]
     Active Substance: DARBEPOETIN ALFA
     Indication: MYELODYSPLASTIC SYNDROME
     Dosage: UNK, QWK
     Route: 058
     Dates: start: 201505
  2. ARANESP [Suspect]
     Active Substance: DARBEPOETIN ALFA
     Dosage: 500 MUG, UNK
     Route: 065

REACTIONS (3)
  - Off label use [Unknown]
  - Product dose omission [Unknown]
  - Living in residential institution [Unknown]
